FAERS Safety Report 11312052 (Version 1)
Quarter: 2015Q3

REPORT INFORMATION
  Report Type: Report from Study
  Country: AR (occurrence: AR)
  Receive Date: 20150727
  Receipt Date: 20150727
  Transmission Date: 20151125
  Serious: Yes (Hospitalization)
  Sender: FDA-Public Use
  Company Number: PHHY2015AR087901

PATIENT
  Sex: Male

DRUGS (1)
  1. ULTIBRO BREEZHALER [Suspect]
     Active Substance: GLYCOPYRRONIUM\INDACATEROL
     Indication: DEPRESSION
     Dosage: 1 DF, QD (1 IN THE MORNING)
     Route: 065

REACTIONS (2)
  - Off label use [Unknown]
  - Malaise [Recovering/Resolving]
